FAERS Safety Report 5416482-2 (Version None)
Quarter: 2007Q3

REPORT INFORMATION
  Report Type: 
  Country: None (occurrence: None)
  Receive Date: 20070814
  Receipt Date: 20070801
  Transmission Date: 20080115
  Serious: Yes (Hospitalization)
  Sender: FDA-Public Use
  Company Number: CIP07001076

PATIENT
  Age: 63 Year
  Sex: Female

DRUGS (4)
  1. ACTONEL [Suspect]
     Indication: OSTEOPOROSIS
     Dosage: 35 MG ONCE WEEKLY, ORAL
     Route: 048
     Dates: start: 20070108, end: 20070427
  2. AROPAX (PAROXETINE HYDROCHLORIDE) [Concomitant]
  3. ATACAND /01349502/ (CANDESARTAN CILEXETIL) [Concomitant]
  4. KLACID /00984601/ (CLARITHROMYCIN) [Concomitant]

REACTIONS (3)
  - GASTROOESOPHAGEAL REFLUX DISEASE [None]
  - NON-CARDIAC CHEST PAIN [None]
  - OESOPHAGITIS [None]
